FAERS Safety Report 11595298 (Version 1)
Quarter: 2015Q4

REPORT INFORMATION
  Report Type: Spontaneous
  Country: DE (occurrence: DE)
  Receive Date: 20151006
  Receipt Date: 20151006
  Transmission Date: 20160304
  Serious: Yes (Hospitalization, Other)
  Sender: FDA-Public Use
  Company Number: DE-009507513-1509DEU015368

PATIENT
  Age: 57 Year
  Sex: Male

DRUGS (1)
  1. BCG LIVE [Suspect]
     Active Substance: BACILLUS CALMETTE-GUERIN SUBSTRAIN TICE LIVE ANTIGEN
     Indication: BLADDER CANCER
     Dosage: 2 CYCLES OF 6 TREATMENTS EACH CYCLE
     Route: 043
     Dates: start: 2012, end: 2012

REACTIONS (2)
  - Aortic aneurysm [Unknown]
  - Infective aneurysm [Unknown]

NARRATIVE: CASE EVENT DATE: 201310
